FAERS Safety Report 11983820 (Version 2)
Quarter: 2016Q1

REPORT INFORMATION
  Report Type: Spontaneous
  Country: US (occurrence: US)
  Receive Date: 20160201
  Receipt Date: 20160211
  Transmission Date: 20160526
  Serious: No
  Sender: FDA-Public Use
  Company Number: US-G+W LABORATORIES-1047156

PATIENT
  Sex: Male

DRUGS (1)
  1. CLINDAMYCIN PHOSPHATE. [Suspect]
     Active Substance: CLINDAMYCIN PHOSPHATE
     Indication: ROSACEA
     Route: 061
     Dates: end: 201601

REACTIONS (7)
  - Off label use [Recovered/Resolved]
  - Ocular hyperaemia [Recovered/Resolved]
  - Product container seal issue [None]
  - Thermal burn [Recovered/Resolved]
  - Eye swelling [Recovered/Resolved]
  - Drug administration error [Recovered/Resolved]
  - Accidental exposure to product [None]
